FAERS Safety Report 4953898-2 (Version None)
Quarter: 2006Q1

REPORT INFORMATION
  Report Type: 
  Country: None (occurrence: None)
  Receive Date: 20060321
  Receipt Date: 20060222
  Transmission Date: 20060701
  Serious: Yes (Hospitalization)
  Sender: FDA-Public Use
  Company Number: 2006SP000891

PATIENT
  Age: 92 Year
  Sex: Female
  Weight: 47.6277 kg

DRUGS (3)
  1. XOPENEX [Suspect]
     Indication: BRONCHITIS
     Dosage: SEE IMAGE
     Route: 055
     Dates: start: 20040101
  2. XOPENEX [Suspect]
     Indication: BRONCHITIS
     Dosage: SEE IMAGE
     Route: 055
     Dates: start: 20050701
  3. XALATAN [Concomitant]

REACTIONS (5)
  - EYE DISORDER [None]
  - HEART RATE INCREASED [None]
  - PNEUMONIA [None]
  - TREMOR [None]
  - VISION BLURRED [None]
